FAERS Safety Report 8240529-1 (Version None)
Quarter: 2012Q1

REPORT INFORMATION
  Report Type: 
  Country: None (occurrence: None)
  Receive Date: 20120328
  Receipt Date: 20120315
  Transmission Date: 20120608
  Serious: Yes (Other)
  Sender: FDA-Public Use
  Company Number: US-ROCHE-1052178

PATIENT
  Sex: Male

DRUGS (1)
  1. LUCENTIS [Suspect]
     Indication: AGE-RELATED MACULAR DEGENERATION
     Dosage: FREQUENCY 4-6 WEEKS
     Route: 050
     Dates: start: 20120127

REACTIONS (2)
  - VISUAL ACUITY REDUCED [None]
  - VITREOUS FLOATERS [None]
